FAERS Safety Report 16822475 (Version 2)
Quarter: 2019Q4

REPORT INFORMATION
  Report Type: Spontaneous
  Country: US (occurrence: US)
  Receive Date: 20190918
  Receipt Date: 20191112
  Transmission Date: 20200122
  Serious: Yes (Other)
  Sender: FDA-Public Use
  Company Number: US-PFIZER INC-2019399210

PATIENT
  Age: 83 Year
  Sex: Female
  Weight: 78.47 kg

DRUGS (1)
  1. DETROL LA [Suspect]
     Active Substance: TOLTERODINE TARTRATE
     Indication: INCONTINENCE
     Dosage: 4 MG, 1X/DAY
     Route: 048
     Dates: start: 201906

REACTIONS (3)
  - Diabetes mellitus [Unknown]
  - Dry skin [Unknown]
  - Drug ineffective [Not Recovered/Not Resolved]
